FAERS Safety Report 6161233-X (Version None)
Quarter: 2009Q2

REPORT INFORMATION
  Report Type: 
  Country: None (occurrence: None)
  Receive Date: 20090417
  Receipt Date: 20090417
  Transmission Date: 20091009
  Serious: Yes (Other)
  Sender: FDA-Public Use
  Company Number: None

PATIENT
  Sex: Female
  Weight: 118.3888 kg

DRUGS (1)
  1. LEVOTHYROXINE SODIUM [Suspect]
     Indication: HYPOTHYROIDISM
     Dosage: 50 MG DAILY ORALLY
     Route: 048
     Dates: start: 20090209, end: 20090324

REACTIONS (2)
  - OEDEMA PERIPHERAL [None]
  - URTICARIA [None]
